FAERS Safety Report 5682698-3 (Version None)
Quarter: 2008Q1

REPORT INFORMATION
  Report Type: 
  Country: None (occurrence: None)
  Receive Date: 20080327
  Receipt Date: 20080317
  Transmission Date: 20080703
  Serious: Yes (Other)
  Sender: FDA-Public Use
  Company Number: FR-AMGEN-US268582

PATIENT
  Age: 82 Year
  Sex: Female

DRUGS (3)
  1. ENBREL [Suspect]
     Indication: RHEUMATOID ARTHRITIS
     Dosage: 50 MG TOTAL WEEKLY
     Route: 058
     Dates: start: 20040101, end: 20080101
  2. METHOTREXATE [Suspect]
     Indication: RHEUMATOID ARTHRITIS
     Dosage: UNKNOWN
     Route: 065
  3. CORTANCYL [Concomitant]
     Indication: RHEUMATOID ARTHRITIS
     Dosage: UNKNOWN
     Route: 048

REACTIONS (2)
  - CATARACT [None]
  - IRIDOCYCLITIS [None]
